FAERS Safety Report 5035980-7 (Version None)
Quarter: 2006Q2

REPORT INFORMATION
  Report Type: 
  Country: None (occurrence: None)
  Receive Date: 20060526
  Receipt Date: 20060216
  Transmission Date: 20061013
  Serious: Yes (Hospitalization)
  Sender: FDA-Public Use
  Company Number: 221209

PATIENT
  Age: 49 Year
  Sex: Male

DRUGS (1)
  1. RAPTIVA [Suspect]
     Indication: PSORIASIS
     Dosage: 0.6 ML, SINGLE, PARENTERAL
     Route: 051
     Dates: start: 20060106, end: 20060106

REACTIONS (2)
  - BLOOD PRESSURE INCREASED [None]
  - MENINGITIS ASEPTIC [None]
